FAERS Safety Report 21628629 (Version 1)
Quarter: 2022Q4

REPORT INFORMATION
  Report Type: Spontaneous
  Country: BR (occurrence: BR)
  Receive Date: 20221122
  Receipt Date: 20221122
  Transmission Date: 20230112
  Serious: Yes (Other)
  Sender: FDA-Public Use
  Company Number: BR-ORGANON-O2211BRA001040

PATIENT
  Sex: Male
  Weight: 98 kg

DRUGS (8)
  1. VYTORIN [Suspect]
     Active Substance: EZETIMIBE\SIMVASTATIN
     Indication: Blood triglycerides increased
     Dosage: EVERY OTHER DAY
     Route: 048
     Dates: start: 202105
  2. VYTORIN [Suspect]
     Active Substance: EZETIMIBE\SIMVASTATIN
     Dosage: 1 DOSAGE FORM
     Route: 048
  3. VYTORIN [Suspect]
     Active Substance: EZETIMIBE\SIMVASTATIN
     Dosage: 1 DOSAGE FORM
     Route: 048
     Dates: end: 202209
  4. GENFIBROZILA [Concomitant]
     Indication: Blood cholesterol increased
     Dosage: 900, 1 TABLET DAILY, FOR 8 TO 10 YEARS
     Route: 048
  5. GENFIBROZILA [Concomitant]
     Indication: Blood triglycerides
  6. METFORMIN HYDROCHLORIDE [Concomitant]
     Active Substance: METFORMIN HYDROCHLORIDE
     Indication: Blood glucose
     Dosage: 4 TABLETS DAILY (1 TABLET IN THE MORNING, 1 TABLET IN THE AFTERNOON AND 2 TABLETS IN THE EVENING) FO
     Route: 048
  7. OMEGA3+ JOY [Concomitant]
     Indication: Analgesic therapy
     Dosage: UNK
  8. OMEGA3+ JOY [Concomitant]
     Indication: Myalgia

REACTIONS (1)
  - Transurethral prostatectomy [Recovered/Resolved]

NARRATIVE: CASE EVENT DATE: 20220601
